FAERS Safety Report 20676547 (Version 1)
Quarter: 2022Q2

REPORT INFORMATION
  Report Type: Spontaneous
  Country: US (occurrence: None)
  Receive Date: 20220405
  Receipt Date: 20220405
  Transmission Date: 20220721
  Serious: No
  Sender: FDA-Public Use
  Company Number: 2022A130535

PATIENT
  Weight: 95.3 kg

DRUGS (1)
  1. FARXIGA [Suspect]
     Active Substance: DAPAGLIFLOZIN PROPANEDIOL
     Indication: Renal failure
     Route: 048
     Dates: start: 202201, end: 20220321

REACTIONS (6)
  - Dysuria [Recovered/Resolved]
  - Psoriasis [Recovering/Resolving]
  - Dysuria [Recovered/Resolved]
  - Pruritus [Recovering/Resolving]
  - Rash erythematous [Recovering/Resolving]
  - Headache [Recovered/Resolved]
